FAERS Safety Report 5649589-5 (Version None)
Quarter: 2008Q1

REPORT INFORMATION
  Report Type: 
  Country: None (occurrence: None)
  Receive Date: 20080304
  Receipt Date: 20080221
  Transmission Date: 20080703
  Serious: Yes (Other)
  Sender: FDA-Public Use
  Company Number: US-PFIZER INC-2008003498

PATIENT
  Sex: Male

DRUGS (4)
  1. XALATAN [Suspect]
     Indication: INTRAOCULAR PRESSURE TEST
     Dates: start: 20051001, end: 20071129
  2. XALATAN [Suspect]
     Indication: GLAUCOMA
  3. AZOPT [Suspect]
     Route: 047
  4. ALL OTHER THERAPEUTIC PRODUCTS [Concomitant]

REACTIONS (1)
  - HERPES SIMPLEX OPHTHALMIC [None]
